FAERS Safety Report 5255776-0 (Version None)
Quarter: 2007Q1

REPORT INFORMATION
  Report Type: 
  Country: None (occurrence: None)
  Receive Date: 20070301
  Receipt Date: 20070212
  Transmission Date: 20070707
  Serious: Yes (Hospitalization)
  Sender: FDA-Public Use
  Company Number: 6030051

PATIENT
  Age: 78 Year
  Sex: Female

DRUGS (7)
  1. GLUCOPHAGE [Suspect]
     Indication: DIABETES MELLITUS
     Dosage: 1700,00 MG  (850 MG, 2 IN 1 D) ORAL
     Route: 048
     Dates: end: 20060830
  2. FOZITEC 10 MG(10 MG, TABLET) (FOSINOPRIL) [Suspect]
     Indication: ESSENTIAL HYPERTENSION
     Dosage: 10,000 MG (10 MG, 1 IN 1 D) ORAL
     Route: 048
     Dates: end: 20060830
  3. DIAMICRON (30 MG, TABLET), (GLICLAZIDE) [Suspect]
     Indication: DIABETES MELLITUS
     Dosage: 0,75 MG (0,75 MG, 1 D) ORAL
     Route: 048
     Dates: end: 20060830
  4. AUGMENTIN [Suspect]
     Indication: DRUG USE FOR UNKNOWN INDICATION
     Dosage: 2,00 GM ( 1GM,2 IN 1 D) INTRAVENOUS (NOT OTHERWISE SPECIFIED)
     Route: 042
     Dates: start: 20060827, end: 20060831
  5. AMARYL [Suspect]
     Indication: DIABETES MELLITUS
     Dosage: 2,00 MG (2 MG,1 IN 1 D) ORAL
     Route: 048
     Dates: end: 20060830
  6. OFLOXACIN [Suspect]
     Indication: DRUG USE FOR UNKNOWN INDICATION
     Dosage: 1,00 DOSAGE FORMS (1 DOSAGE FORMS, 1 IN 1 D) INTRAVENOUS (NOT OTHERWISE SPECIFIED)
     Route: 042
     Dates: start: 20060828, end: 20060829
  7. AMLODIPINE BESYLATE [Suspect]
     Indication: ESSENTIAL HYPERTENSION
     Dosage: 5,00 MG (5 MG, 1 IN 1 D) ORAL
     Route: 048
     Dates: end: 20060903

REACTIONS (1)
  - RENAL FAILURE ACUTE [None]
